FAERS Safety Report 9254032 (Version 1)
Quarter: 2013Q2

REPORT INFORMATION
  Report Type: Spontaneous
  Country: ES (occurrence: ES)
  Receive Date: 20130425
  Receipt Date: 20130425
  Transmission Date: 20140414
  Serious: Yes (Hospitalization, Other)
  Sender: FDA-Public Use
  Company Number: ES-ROXANE LABORATORIES, INC.-2013-RO-00530RO

PATIENT
  Age: 69 Year
  Sex: Male

DRUGS (6)
  1. LITHIUM CARBONATE [Suspect]
     Indication: BIPOLAR DISORDER
     Dosage: 1200 MG
  2. ALPRAZOLAM INTENSOL [ORAL SOLUTION (CONCENTRATE)] 1 MG/ML [Suspect]
     Dosage: 4 MG
  3. ENALAPRIL [Suspect]
     Dosage: 20 MG
  4. ATORVASTATIN [Suspect]
     Dosage: 40 MG
  5. ACETYLSALICYLIC ACID [Suspect]
     Dosage: 100 MG
  6. NSAIDS [Concomitant]

REACTIONS (4)
  - Nephrogenic diabetes insipidus [Unknown]
  - Hypernatraemia [Recovered/Resolved]
  - Respiratory tract infection [Unknown]
  - Confusional state [Recovered/Resolved]
